FAERS Safety Report 6683282-5 (Version None)
Quarter: 2010Q2

REPORT INFORMATION
  Report Type: 
  Country: None (occurrence: None)
  Receive Date: 20100415
  Receipt Date: 20100412
  Transmission Date: 20101027
  Serious: Yes (Other)
  Sender: FDA-Public Use
  Company Number: NZ-ROXANE LABORATORIES, INC.-2010-RO-00407RO

PATIENT
  Age: 8 Year
  Sex: Male

DRUGS (5)
  1. MORPHINE [Suspect]
     Indication: ANAESTHESIA
  2. MORPHINE [Suspect]
     Indication: POSTOPERATIVE ANALGESIA
  3. TRAMADOL HCL [Suspect]
     Indication: INDUCTION OF ANAESTHESIA
  4. D-TUBOCURARINE [Suspect]
     Indication: NEUROMUSCULAR BLOCKADE
  5. MEPERIDINE HCL [Suspect]
     Indication: POSTOPERATIVE ANALGESIA
     Route: 030

REACTIONS (1)
  - WEANING FAILURE [None]
